FAERS Safety Report 6319376-3 (Version None)
Quarter: 2009Q3

REPORT INFORMATION
  Report Type: 
  Country: None (occurrence: None)
  Receive Date: 20090822
  Receipt Date: 20080916
  Transmission Date: 20100115
  Serious: No
  Sender: FDA-Public Use
  Company Number: US-ABBOTT-08P-163-0474178-00

PATIENT
  Sex: Female
  Weight: 81.72 kg

DRUGS (11)
  1. NIASPAN [Suspect]
     Indication: BLOOD CHOLESTEROL INCREASED
     Route: 048
     Dates: start: 20080813, end: 20080914
  2. NIASPAN [Suspect]
     Dates: start: 20080914
  3. ASPIRIN [Concomitant]
     Indication: DRUG USE FOR UNKNOWN INDICATION
     Route: 048
  4. MOPADAY [Concomitant]
     Indication: DIABETES MELLITUS
     Dosage: 30/1000MG
     Route: 048
     Dates: start: 20060101
  5. INEGY [Concomitant]
     Indication: BLOOD CHOLESTEROL INCREASED
     Dosage: 10/40MG
     Route: 048
     Dates: start: 20040101
  6. DOZOL [Concomitant]
     Indication: INSOMNIA
     Dosage: 1000/50MG
     Route: 048
  7. DIOVAN HCT [Concomitant]
     Indication: BLOOD PRESSURE
     Dosage: 240/37.5MG
     Route: 048
     Dates: start: 20020101
  8. ERGOCALCIFEROL [Concomitant]
     Indication: DRUG USE FOR UNKNOWN INDICATION
     Dosage: 50,000 IU
  9. ESTRADIAL [Concomitant]
     Indication: MENOPAUSE
     Route: 048
  10. FLUOXETINE [Concomitant]
     Indication: FIBROMYALGIA
     Route: 048
     Dates: start: 19930101
  11. CALCIUM CARBONATE [Concomitant]
     Indication: BLOOD CALCIUM
     Route: 048

REACTIONS (3)
  - FLUSHING [None]
  - PARAESTHESIA [None]
  - PRURITUS [None]
